FAERS Safety Report 4903369-4 (Version None)
Quarter: 2006Q1

REPORT INFORMATION
  Report Type: 
  Country: None (occurrence: None)
  Receive Date: 20060206
  Receipt Date: 20060206
  Transmission Date: 20060701
  Serious: No
  Sender: FDA-Public Use
  Company Number: None

PATIENT
  Sex: Female

DRUGS (1)
  1. ALEMTUZUMAB [Suspect]

REACTIONS (3)
  - DYSPNOEA [None]
  - RASH [None]
  - WHEEZING [None]
